FAERS Safety Report 7986954-5 (Version None)
Quarter: 2011Q4

REPORT INFORMATION
  Report Type: 
  Country: None (occurrence: None)
  Receive Date: 20111216
  Receipt Date: 20110914
  Transmission Date: 20120403
  Serious: No
  Sender: FDA-Public Use
  Company Number: US-BRISTOL-MYERS SQUIBB COMPANY-16059974

PATIENT
  Age: 63 Year
  Sex: Female
  Weight: 59 kg

DRUGS (6)
  1. ABILIFY [Suspect]
     Indication: DEPRESSION
     Dates: start: 20110501
  2. ABILIFY [Suspect]
     Indication: BIPOLAR DISORDER
     Dates: start: 20110501
  3. KLONOPIN [Concomitant]
  4. ABILIFY [Suspect]
     Indication: ANXIETY
     Dates: start: 20110501
  5. NASACORT [Concomitant]
  6. CYTOMEL [Concomitant]

REACTIONS (1)
  - VISION BLURRED [None]
